FAERS Safety Report 20614057 (Version 2)
Quarter: 2022Q2

REPORT INFORMATION
  Report Type: Other
  Country: CN (occurrence: CN)
  Receive Date: 20220319
  Receipt Date: 20220418
  Transmission Date: 20220721
  Serious: Yes (Hospitalization)
  Sender: FDA-Public Use
  Company Number: CN-AstraZeneca-2022A013232

PATIENT
  Age: 69 Year
  Sex: Male

DRUGS (5)
  1. BEVACIZUMAB [Suspect]
     Active Substance: BEVACIZUMAB
     Indication: Non-small cell lung cancer
     Dosage: 400 MG/MONTH
     Route: 065
     Dates: start: 20190606, end: 20200305
  2. OSIMERTINIB [Suspect]
     Active Substance: OSIMERTINIB
     Indication: Non-small cell lung cancer
     Route: 048
     Dates: start: 20190130
  3. GEFITINIB [Concomitant]
     Active Substance: GEFITINIB
  4. ROCILETINIB [Concomitant]
     Active Substance: ROCILETINIB
  5. AFATINIB [Concomitant]
     Active Substance: AFATINIB

REACTIONS (4)
  - Nausea [Recovered/Resolved]
  - Malignant neoplasm progression [Unknown]
  - Cardiac failure [Recovering/Resolving]
  - Central nervous system lesion [Unknown]
